FAERS Safety Report 7052356-1 (Version None)
Quarter: 2010Q4

REPORT INFORMATION
  Report Type: 
  Country: None (occurrence: None)
  Receive Date: 20101019
  Receipt Date: 20101004
  Transmission Date: 20110411
  Serious: Yes (Hospitalization)
  Sender: FDA-Public Use
  Company Number: US-JNJCH-2010021466

PATIENT
  Age: 4 Year
  Sex: Male

DRUGS (4)
  1. DIPHENHYDRAMINE HCL [Suspect]
     Indication: PRURITUS
     Route: 048
  2. BENADRYL [Suspect]
     Indication: PRURITUS
     Dosage: TEXT:UNSPECIFIED AS NEEDED
     Route: 061
  3. ACETAMINOPHEN [Suspect]
     Indication: PYREXIA
     Route: 048
  4. CALADRYL [Suspect]
     Indication: PRURITUS
     Dosage: TEXT:UNSPECIFIED ON FOUR OCCASIONS
     Route: 061

REACTIONS (4)
  - DRUG TOXICITY [None]
  - OFF LABEL USE [None]
  - OVERDOSE [None]
  - WRONG DRUG ADMINISTERED [None]
